FAERS Safety Report 9451219 (Version 2)
Quarter: 2013Q3

REPORT INFORMATION
  Report Type: Spontaneous
  Country: JP (occurrence: JP)
  Receive Date: 20130809
  Receipt Date: 20130827
  Transmission Date: 20140515
  Serious: Yes (Other)
  Sender: FDA-Public Use
  Company Number: JP-TEVA-423381ISR

PATIENT
  Age: 7 Decade
  Sex: Female

DRUGS (8)
  1. IRINOTECAN [Suspect]
     Indication: COLON CANCER METASTATIC
     Dosage: 160 MILLIGRAM DAILY;
     Route: 065
     Dates: end: 200906
  2. OXALIPLATIN [Suspect]
     Indication: COLON CANCER METASTATIC
     Dosage: 100 MILLIGRAM DAILY; D1
     Route: 065
     Dates: end: 200904
  3. FOLINIC ACID [Suspect]
     Indication: COLON CANCER METASTATIC
     Dosage: 125 MILLIGRAM DAILY; D1+2
     Route: 065
     Dates: end: 200904
  4. FOLINIC ACID [Suspect]
     Indication: COLON CANCER METASTATIC
     Dosage: 250 MILLIGRAM DAILY;
     Route: 065
     Dates: end: 200906
  5. FLUOROURACIL [Suspect]
     Indication: COLON CANCER METASTATIC
     Dosage: 500 MILLIGRAM DAILY; D1+2
     Route: 040
     Dates: end: 200904
  6. FLUOROURACIL [Suspect]
     Dosage: 750 MILLIGRAM DAILY;
     Route: 065
     Dates: end: 200904
  7. FLUOROURACIL [Suspect]
     Dosage: 500 MILLIGRAM DAILY;
     Route: 040
     Dates: end: 200906
  8. FLUOROURACIL [Suspect]
     Dosage: 3700 MILLIGRAM DAILY;
     Route: 065
     Dates: end: 200906

REACTIONS (5)
  - Neuropathy peripheral [Unknown]
  - Decreased appetite [Unknown]
  - Stomatitis [Unknown]
  - Alopecia [Unknown]
  - Nausea [Unknown]
